FAERS Safety Report 4310171-3 (Version None)
Quarter: 2004Q1

REPORT INFORMATION
  Report Type: 
  Country: None (occurrence: None)
  Receive Date: 20040301
  Receipt Date: 20040121
  Transmission Date: 20041129
  Serious: No
  Sender: FDA-Public Use
  Company Number: WAES 0401USA01590

PATIENT
  Age: 61 Year
  Sex: Female

DRUGS (8)
  1. ZETIA [Suspect]
     Indication: BLOOD CHOLESTEROL INCREASED
     Dosage: 10 MG/DAILY/PO
     Route: 048
     Dates: start: 20031201
  2. ZETIA [Suspect]
     Indication: BLOOD CHOLESTEROL INCREASED
     Dosage: 10 MG/DAILY/PO
     Route: 048
     Dates: start: 20040113
  3. CELEBREX [Concomitant]
  4. ESCLIM [Concomitant]
  5. LAMICTAL [Concomitant]
  6. LORTAB [Concomitant]
  7. ZOLOFT [Concomitant]
  8. CLONAZEPAM [Concomitant]

REACTIONS (2)
  - BACK PAIN [None]
  - DYSPEPSIA [None]
